FAERS Safety Report 23390224 (Version 3)
Quarter: 2024Q1

REPORT INFORMATION
  Report Type: Spontaneous
  Country: US (occurrence: US)
  Receive Date: 20240111
  Receipt Date: 20240116
  Transmission Date: 20240409
  Serious: No
  Sender: FDA-Public Use
  Company Number: US-AstraZeneca-CH-00541381A

PATIENT
  Sex: Female

DRUGS (1)
  1. SOLIRIS [Suspect]
     Active Substance: ECULIZUMAB
     Indication: Neuromyelitis optica spectrum disorder
     Dosage: UNK
     Route: 042
     Dates: start: 202307

REACTIONS (1)
  - Radiation injury [Unknown]
